FAERS Safety Report 4435422-6 (Version None)
Quarter: 2004Q3

REPORT INFORMATION
  Report Type: 
  Country: None (occurrence: None)
  Receive Date: 20040827
  Receipt Date: 20040817
  Transmission Date: 20050211
  Serious: Yes (Hospitalization)
  Sender: FDA-Public Use
  Company Number: FR-AMGEN-US088172

PATIENT
  Age: 65 Year
  Sex: Male

DRUGS (11)
  1. ENBREL [Suspect]
     Indication: RHEUMATOID ARTHRITIS
     Route: 058
     Dates: start: 20031215, end: 20040606
  2. PREDNISOLONE [Concomitant]
     Dates: start: 20030615
  3. INDOCIN [Concomitant]
     Dates: start: 20030615
  4. CORTANCYL [Concomitant]
     Dates: start: 20030715
  5. NEXIUM [Concomitant]
     Dates: start: 20040615
  6. NICARDIPINE HCL [Concomitant]
  7. GAVISCON [Concomitant]
  8. ALLOPURINOL [Concomitant]
  9. DOLIPRANE [Concomitant]
  10. MORPHINE SULFATE [Concomitant]
  11. FOSAMAX [Concomitant]

REACTIONS (4)
  - DERMATITIS BULLOUS [None]
  - PSEUDOMONAS INFECTION [None]
  - SKIN NECROSIS [None]
  - SUBCUTANEOUS ABSCESS [None]
